FAERS Safety Report 8187396-2 (Version None)
Quarter: 2012Q1

REPORT INFORMATION
  Report Type: 
  Country: None (occurrence: None)
  Receive Date: 20120302
  Receipt Date: 20120221
  Transmission Date: 20120608
  Serious: Yes (Hospitalization)
  Sender: FDA-Public Use
  Company Number: 2012SP004301

PATIENT
  Age: 61 Year
  Sex: Male

DRUGS (4)
  1. REBETOL [Suspect]
     Indication: HEPATITIS C
     Dosage: 400 MG;BID;PO
     Route: 048
     Dates: start: 20050316, end: 20050825
  2. PEGINTERFERON ALFA-2B [Suspect]
     Indication: HEPATITIS C
     Dosage: 80 MCG;QW;SC
     Route: 058
     Dates: start: 20050316, end: 20050825
  3. ACECOL [Concomitant]
  4. LENDORMIN [Concomitant]

REACTIONS (4)
  - NEURODEGENERATIVE DISORDER [None]
  - FALL [None]
  - CEREBRAL INFARCTION [None]
  - ALCOHOL USE [None]
